FAERS Safety Report 8416200-X (Version None)
Quarter: 2012Q2

REPORT INFORMATION
  Report Type: 
  Country: None (occurrence: None)
  Receive Date: 20120530
  Receipt Date: 20120521
  Transmission Date: 20120825
  Serious: Yes (Other)
  Sender: FDA-Public Use
  Company Number: 2012SP024688

PATIENT
  Age: 67 Year
  Sex: Male

DRUGS (5)
  1. PEG-INTRON [Suspect]
     Indication: PRODUCT USED FOR UNKNOWN INDICATION
     Dosage: 1.5 MCG/KG;QW;SC
     Route: 058
     Dates: start: 20120418, end: 20120418
  2. TELAVIC (ANTIVIRALS NOS) [Suspect]
     Indication: PRODUCT USED FOR UNKNOWN INDICATION
     Dosage: 2250 MG;QD;PO
     Route: 048
     Dates: start: 20120418, end: 20120420
  3. REBETOL [Suspect]
     Indication: PRODUCT USED FOR UNKNOWN INDICATION
     Dosage: 800 MG;QD;PO
     Route: 048
     Dates: start: 20120418, end: 20120420
  4. DIGOXIN [Concomitant]
  5. DIURETICS [Concomitant]

REACTIONS (8)
  - BLOOD PRESSURE DECREASED [None]
  - RENAL DISORDER [None]
  - HAEMOGLOBIN DECREASED [None]
  - URINE FLOW DECREASED [None]
  - ANAEMIA [None]
  - RENAL FAILURE ACUTE [None]
  - HEART RATE DECREASED [None]
  - PYREXIA [None]
